FAERS Safety Report 24843252 (Version 1)
Quarter: 2025Q1

REPORT INFORMATION
  Report Type: Spontaneous
  Country: US (occurrence: US)
  Receive Date: 20250115
  Receipt Date: 20250115
  Transmission Date: 20250409
  Serious: Yes (Hospitalization)
  Sender: Y-MABS THERAPEUTICS
  Company Number: US-Y-MABS THERAPEUTICS, INC.-SPO2025-US-001893

PATIENT

DRUGS (4)
  1. DANYELZA [Suspect]
     Active Substance: NAXITAMAB-GQGK
     Indication: Neuroblastoma
     Route: 042
  2. TEMODAR [Concomitant]
     Active Substance: TEMOZOLOMIDE
  3. IRINOTECAN [Concomitant]
     Active Substance: IRINOTECAN
  4. ATIVAN [Concomitant]
     Active Substance: LORAZEPAM

REACTIONS (2)
  - Hypotension [Unknown]
  - Off label use [Recovered/Resolved]
